FAERS Safety Report 10761951 (Version 1)
Quarter: 2015Q1

REPORT INFORMATION
  Report Type: Spontaneous
  Country: US (occurrence: None)
  Receive Date: 20150128
  Receipt Date: 20150128
  Transmission Date: 20150721
  Serious: Yes (Hospitalization)
  Sender: FDA-Public Use
  Company Number: 1452640

PATIENT
  Age: 77 Year
  Sex: Female
  Weight: 41.73 kg

DRUGS (9)
  1. PREDNISONE. [Concomitant]
     Active Substance: PREDNISONE
  2. CITALOPRAM [Concomitant]
     Active Substance: CITALOPRAM HYDROBROMIDE
  3. ASPIRIN. [Concomitant]
     Active Substance: ASPIRIN
  4. LEVOTHYROXINE [Concomitant]
     Active Substance: LEVOTHYROXINE
  5. VALSARTAN. [Concomitant]
     Active Substance: VALSARTAN
  6. TOLTERODINE [Concomitant]
     Active Substance: TOLTERODINE
  7. RITUXAN [Suspect]
     Active Substance: RITUXIMAB
     Indication: RHEUMATOID ARTHRITIS
     Dosage: X2 (1000 MG, 1 IN 2 WK)
     Route: 042
     Dates: start: 20110901, end: 20140612
  8. RABEPRAZOLE [Concomitant]
     Active Substance: RABEPRAZOLE
  9. HYDROXYCHLOROQUINE (HYDROXYCHLOROQUINE SULFATE) [Concomitant]

REACTIONS (2)
  - Arthritis bacterial [None]
  - Histoplasmosis [None]

NARRATIVE: CASE EVENT DATE: 20140805
